FAERS Safety Report 7058080-3 (Version None)
Quarter: 2010Q4

REPORT INFORMATION
  Report Type: 
  Country: None (occurrence: None)
  Receive Date: 20101022
  Receipt Date: 20101008
  Transmission Date: 20110411
  Serious: Yes (Hospitalization, Other)
  Sender: FDA-Public Use
  Company Number: US-ELI_LILLY_AND_COMPANY-US201010002304

PATIENT
  Sex: Female

DRUGS (13)
  1. FORTEO [Suspect]
     Indication: OSTEOPOROSIS
     Dosage: 20 UG, DAILY (1/D)
     Route: 058
  2. ENDODAN [Concomitant]
  3. ALPRAZOLAM [Concomitant]
  4. JANUMET [Concomitant]
  5. PROMETRIUM [Concomitant]
  6. FUROSEMIDE [Concomitant]
  7. SIMVASTATIN [Concomitant]
  8. PLAVIX [Concomitant]
  9. POTASSIUM CHLORIDE [Concomitant]
  10. ISOSORBIDE DINITRATE [Concomitant]
  11. OMEPRAZOLE [Concomitant]
  12. ESTRADIOL [Concomitant]
  13. SYNTHROID [Concomitant]

REACTIONS (12)
  - ABASIA [None]
  - ANXIETY [None]
  - CONFUSIONAL STATE [None]
  - DEFORMITY [None]
  - DIARRHOEA [None]
  - FEAR [None]
  - INFLUENZA [None]
  - INTENTIONAL DRUG MISUSE [None]
  - MEDICATION ERROR [None]
  - OEDEMA PERIPHERAL [None]
  - VASCULAR OCCLUSION [None]
  - VOMITING [None]
